FAERS Safety Report 13216419 (Version 1)
Quarter: 2017Q1

REPORT INFORMATION
  Report Type: Other
  Country: US (occurrence: US)
  Receive Date: 20170210
  Receipt Date: 20170210
  Transmission Date: 20170428
  Serious: No
  Sender: FDA-Public Use
  Company Number: US-ACORDA-ACO_123749_2016

PATIENT
  Sex: Male
  Weight: 74.83 kg

DRUGS (5)
  1. AMPYRA [Suspect]
     Active Substance: DALFAMPRIDINE
     Indication: GAIT DISTURBANCE
  2. TECFIDERA [Suspect]
     Active Substance: DIMETHYL FUMARATE
     Indication: MULTIPLE SCLEROSIS
     Dosage: 240 MG, BID
     Route: 048
     Dates: start: 2013
  3. BACLOFEN. [Suspect]
     Active Substance: BACLOFEN
     Dosage: 5 MG, QD
     Route: 048
  4. AMPYRA [Suspect]
     Active Substance: DALFAMPRIDINE
     Indication: MULTIPLE SCLEROSIS
     Dosage: 10 MG, BID
     Route: 048
     Dates: start: 201603
  5. BACLOFEN. [Suspect]
     Active Substance: BACLOFEN
     Indication: BAND SENSATION
     Dosage: 10 MG, BID
     Route: 048

REACTIONS (5)
  - Flushing [Unknown]
  - Band sensation [Unknown]
  - Fatigue [Unknown]
  - Drug effect variable [Unknown]
  - Therapeutic response unexpected [Unknown]
